FAERS Safety Report 25931446 (Version 2)
Quarter: 2025Q4

REPORT INFORMATION
  Report Type: Spontaneous
  Country: CA (occurrence: CA)
  Receive Date: 20251016
  Receipt Date: 20251111
  Transmission Date: 20260117
  Serious: No
  Sender: MYLAN
  Company Number: CA-MYLANLABS-2025M1084936

PATIENT
  Sex: Female

DRUGS (1)
  1. EPIPEN [Suspect]
     Active Substance: EPINEPHRINE
     Indication: Hypersensitivity
     Dosage: UNK

REACTIONS (2)
  - Drug dose omission by device [Unknown]
  - Device failure [Unknown]

NARRATIVE: CASE EVENT DATE: 20250101
